FAERS Safety Report 15606907 (Version 1)
Quarter: 2018Q4

REPORT INFORMATION
  Report Type: Spontaneous
  Country: US (occurrence: US)
  Receive Date: 20181106
  Receipt Date: 20181106
  Transmission Date: 20190205
  Serious: No
  Sender: FDA-Public Use
  Company Number: None

PATIENT
  Age: 23 Year
  Sex: Female
  Weight: 97.07 kg

DRUGS (1)
  1. BUTORPHANOL 2 MG/ML [Suspect]
     Active Substance: BUTORPHANOL
     Indication: LABOUR PAIN
     Route: 042

REACTIONS (4)
  - Swollen tongue [None]
  - Facial paralysis [None]
  - Drug hypersensitivity [None]
  - Hypoaesthesia [None]

NARRATIVE: CASE EVENT DATE: 20180927
